FAERS Safety Report 14936964 (Version 1)
Quarter: 2018Q2

REPORT INFORMATION
  Report Type: Spontaneous
  Country: DE (occurrence: DE)
  Receive Date: 20180525
  Receipt Date: 20180525
  Transmission Date: 20180711
  Serious: Yes (Hospitalization)
  Sender: FDA-Public Use
  Company Number: DE-CONCORDIA PHARMACEUTICALS INC.-E2B_00011883

PATIENT
  Age: 73 Year
  Sex: Female

DRUGS (9)
  1. VINCRISTIN [Suspect]
     Active Substance: VINCRISTINE
     Dosage: NK MG, NK
  2. DOXORUBICIN [Suspect]
     Active Substance: DOXORUBICIN
     Dosage: NK MG, NK
  3. ALLOPURINOL. [Concomitant]
     Active Substance: ALLOPURINOL
     Dosage: 100 MG, 1-0-0-0
  4. CYCLOPHOSPHAMID [Suspect]
     Active Substance: CYCLOPHOSPHAMIDE
     Dosage: NK MG, NK
  5. PREDNISOLONE. [Suspect]
     Active Substance: PREDNISOLONE
     Dosage: NK MG, NK
  6. COTRIM FORTE [Suspect]
     Active Substance: SULFAMETHOXAZOLE\TRIMETHOPRIM
     Dosage: 800|160 MG, 1-0-0-0 MO, MI FR
  7. RITUXIMAB. [Suspect]
     Active Substance: RITUXIMAB
     Dosage: NK MG, NK
  8. AMLODIPINE [Concomitant]
     Active Substance: AMLODIPINE BESYLATE
     Dosage: 2.5 MG, 1-0-1-0
  9. DEKRISTOL [Suspect]
     Active Substance: CHOLECALCIFEROL
     Dosage: 1000 MG, 1 X/WOCHE

REACTIONS (3)
  - Vomiting [Unknown]
  - Diarrhoea [Unknown]
  - General physical health deterioration [Unknown]
